FAERS Safety Report 11853339 (Version 1)
Quarter: 2015Q4

REPORT INFORMATION
  Report Type: Spontaneous
  Country: US (occurrence: US)
  Receive Date: 20151218
  Receipt Date: 20151218
  Transmission Date: 20160305
  Serious: No
  Sender: FDA-Public Use
  Company Number: US-OTSUKA-2015_014564

PATIENT
  Age: 25 Year
  Sex: Male

DRUGS (4)
  1. TRILEPTAL [Concomitant]
     Active Substance: OXCARBAZEPINE
     Indication: CYST
     Dosage: UNK
     Route: 065
  2. ABILIFY MAINTENA [Suspect]
     Active Substance: ARIPIPRAZOLE
     Indication: BIPOLAR DISORDER
     Dosage: 300 MG, MONTHLY
     Route: 030
     Dates: start: 201409
  3. EFFEXOR [Concomitant]
     Active Substance: VENLAFAXINE HYDROCHLORIDE
     Indication: ANXIETY
     Dosage: UNK
     Route: 065
  4. ABILIFY MAINTENA [Suspect]
     Active Substance: ARIPIPRAZOLE
     Dosage: 300 MG, MONTHLY
     Route: 030
     Dates: start: 20150913, end: 20150913

REACTIONS (4)
  - Self-medication [Unknown]
  - Abnormal behaviour [Unknown]
  - Drug dose omission [Unknown]
  - Off label use [Unknown]

NARRATIVE: CASE EVENT DATE: 2014
